FAERS Safety Report 4304324-8 (Version None)
Quarter: 2004Q1

REPORT INFORMATION
  Report Type: 
  Country: None (occurrence: None)
  Receive Date: 20040224
  Receipt Date: 20040209
  Transmission Date: 20041129
  Serious: Yes (Hospitalization)
  Sender: FDA-Public Use
  Company Number: 190581

PATIENT
  Age: 38 Year
  Sex: Female
  Weight: 88.905 kg

DRUGS (9)
  1. AVONEX [Suspect]
     Indication: MULTIPLE SCLEROSIS
     Dosage: 30 MCG QW IM
     Route: 030
     Dates: start: 20000101, end: 20031101
  2. AVONEX [Suspect]
     Indication: MULTIPLE SCLEROSIS
     Dosage: 30 MCG QW IM
     Route: 030
     Dates: start: 20031101
  3. EFFEXOR [Concomitant]
  4. TRAZODONE HCL [Concomitant]
  5. PAXIL [Concomitant]
  6. VISTARIL [Concomitant]
  7. ZYPREXA [Concomitant]
  8. ADVAIR DISKUS 100/50 [Concomitant]
  9. ALBUTEROL [Concomitant]

REACTIONS (12)
  - ABSCESS [None]
  - ARNOLD-CHIARI MALFORMATION [None]
  - BLOOD PRESSURE DECREASED [None]
  - CORONARY ARTERY OCCLUSION [None]
  - FALL [None]
  - FEMUR FRACTURE [None]
  - FRACTURE NONUNION [None]
  - HYPERTENSION [None]
  - MYOCARDIAL INFARCTION [None]
  - POSTOPERATIVE INFECTION [None]
  - TIBIA FRACTURE [None]
  - WOUND INFECTION [None]
